FAERS Safety Report 18296845 (Version 2)
Quarter: 2020Q4

REPORT INFORMATION
  Report Type: Spontaneous
  Country: FR (occurrence: FR)
  Receive Date: 20200922
  Receipt Date: 20201229
  Transmission Date: 20210113
  Serious: Yes (Hospitalization, Other)
  Sender: FDA-Public Use
  Company Number: FR-PFIZER INC-2020151041

PATIENT
  Age: 61 Year
  Sex: Female

DRUGS (1)
  1. LORLATINIB [Suspect]
     Active Substance: LORLATINIB
     Indication: LUNG ADENOCARCINOMA
     Dosage: 100 MG, DAILY
     Route: 048
     Dates: start: 20200417

REACTIONS (7)
  - Breast cancer [Unknown]
  - Off label use [Unknown]
  - Oedema peripheral [Unknown]
  - Respiratory disorder [Unknown]
  - Pleural effusion [Unknown]
  - Hyperthyroidism [Unknown]
  - Second primary malignancy [Unknown]

NARRATIVE: CASE EVENT DATE: 20200417
